APPROVED DRUG PRODUCT: POSACONAZOLE
Active Ingredient: POSACONAZOLE
Strength: 40MG/ML
Dosage Form/Route: SUSPENSION;ORAL
Application: A208773 | Product #001 | TE Code: AB
Applicant: HIKMA PHARMACEUTICALS USA INC
Approved: May 15, 2020 | RLD: No | RS: No | Type: RX